FAERS Safety Report 5050289-3 (Version None)
Quarter: 2006Q3

REPORT INFORMATION
  Report Type: 
  Country: None (occurrence: None)
  Receive Date: 20060713
  Receipt Date: 20060710
  Transmission Date: 20061208
  Serious: Yes (Hospitalization)
  Sender: FDA-Public Use
  Company Number: FR-AVENTIS-200612444FR

PATIENT
  Age: 56 Year
  Sex: Female
  Weight: 78 kg

DRUGS (5)
  1. FLAGYL [Suspect]
     Indication: EXTRADURAL ABSCESS
     Route: 048
     Dates: start: 20060524, end: 20060602
  2. FLAGYL [Suspect]
     Indication: STREPTOCOCCAL INFECTION
     Route: 048
     Dates: start: 20060524, end: 20060602
  3. CLAMOXYL [Suspect]
     Indication: EXTRADURAL ABSCESS
     Route: 042
     Dates: start: 20060523, end: 20060605
  4. CLAMOXYL [Suspect]
     Indication: STREPTOCOCCAL INFECTION
     Route: 042
     Dates: start: 20060523, end: 20060605
  5. TOPALGIC [Concomitant]
     Route: 048

REACTIONS (1)
  - BLOOD CREATININE INCREASED [None]
